FAERS Safety Report 9993845 (Version 1)
Quarter: 2014Q1

REPORT INFORMATION
  Report Type: Spontaneous
  Country: US (occurrence: US)
  Receive Date: 20140310
  Receipt Date: 20140310
  Transmission Date: 20141002
  Serious: No
  Sender: FDA-Public Use
  Company Number: US-AMGEN-USASP2014010243

PATIENT
  Age: 31 Year
  Sex: Male

DRUGS (4)
  1. SENSIPAR [Suspect]
     Indication: HYPERPARATHYROIDISM SECONDARY
     Dosage: 60 MG, QD
     Route: 065
     Dates: start: 20140206
  2. PROGRESSE [Concomitant]
  3. CELLCEPT                           /01275102/ [Concomitant]
  4. CLONIDINE [Concomitant]

REACTIONS (2)
  - Hypoaesthesia [Unknown]
  - Paraesthesia [Unknown]
